FAERS Safety Report 6500082-7 (Version None)
Quarter: 2009Q4

REPORT INFORMATION
  Report Type: 
  Country: None (occurrence: None)
  Receive Date: 20091214
  Receipt Date: 20091214
  Transmission Date: 20100525
  Serious: Yes (Hospitalization)
  Sender: FDA-Public Use
  Company Number: None

PATIENT
  Age: 84 Year
  Sex: Male
  Weight: 68.6 kg

DRUGS (1)
  1. ULORIC [Suspect]
     Indication: GOUT
     Dosage: 40MG 1 A DAY
     Dates: start: 20090830, end: 20090903

REACTIONS (2)
  - CONDITION AGGRAVATED [None]
  - GOUT [None]
